FAERS Safety Report 24843764 (Version 2)
Quarter: 2025Q3

REPORT INFORMATION
  Report Type: Spontaneous
  Country: EU (occurrence: EU)
  Receive Date: 20250115
  Receipt Date: 20250809
  Transmission Date: 20251020
  Serious: Yes (Hospitalization)
  Sender: ALEXION PHARMACEUTICALS
  Company Number: None

PATIENT
  Age: 4 Day
  Sex: Male
  Weight: 3.45 kg

DRUGS (1)
  1. NIRSEVIMAB [Suspect]
     Active Substance: NIRSEVIMAB
     Indication: Antiviral prophylaxis
     Route: 065
     Dates: start: 20241117, end: 20241117

REACTIONS (1)
  - Nystagmus [Recovering/Resolving]

NARRATIVE: CASE EVENT DATE: 20241118
